FAERS Safety Report 24819723 (Version 2)
Quarter: 2025Q1

REPORT INFORMATION
  Report Type: Spontaneous
  Country: US (occurrence: US)
  Receive Date: 20250108
  Receipt Date: 20250127
  Transmission Date: 20250409
  Serious: Yes (Other)
  Sender: PROCTER AND GAMBLE
  Company Number: US-PROCTER_AND_GAMBLE-GS24168488

PATIENT

DRUGS (2)
  1. CREST PRO-HEALTH ADVANCED EXTRA DEEP CLEAN [Suspect]
     Active Substance: STANNOUS FLUORIDE
     Route: 002
  2. DEVICE [Suspect]
     Active Substance: DEVICE
     Route: 002

REACTIONS (1)
  - Tooth injury [Unknown]
